FAERS Safety Report 5018350-7 (Version None)
Quarter: 2006Q2

REPORT INFORMATION
  Report Type: 
  Country: None (occurrence: None)
  Receive Date: 20060530
  Receipt Date: 20060517
  Transmission Date: 20061013
  Serious: Yes (Death, Life-Threatening, Hospitalization, Other)
  Sender: FDA-Public Use
  Company Number: 2006051317

PATIENT
  Age: 58 Year
  Sex: Male
  Weight: 39.3 kg

DRUGS (9)
  1. CLINDAMYCIN PHOSPHATE [Suspect]
     Indication: PNEUMONIA
     Dosage: 1200 MG (600 MG, 2 IN 1 D), INTRAVENOUS
     Route: 042
     Dates: start: 20060220, end: 20060226
  2. SULPERAZON (SULBACTAM, CEFOPERAZONE) [Suspect]
     Indication: PNEUMONIA
     Dosage: 2 GRAM (1 GRAM, 2 IN 1 D), INTRAVENOUS
     Route: 042
     Dates: start: 20060221
  3. RISPERDAL [Concomitant]
  4. PIPERACILLIN [Concomitant]
  5. ROHYPNOL (FLUNITRAZEPAM) [Concomitant]
  6. PARLODEL [Concomitant]
  7. DIAMOX [Concomitant]
  8. MEROPEN (MEROPENEM) [Concomitant]
  9. MAXIPIME [Concomitant]

REACTIONS (7)
  - DRUG ERUPTION [None]
  - GASTRIC ULCER [None]
  - HAEMOGLOBIN DECREASED [None]
  - HYPOPROTHROMBINAEMIA [None]
  - MELAENA [None]
  - PENILE HAEMORRHAGE [None]
  - STRESS ULCER [None]
